FAERS Safety Report 19047951 (Version 5)
Quarter: 2022Q1

REPORT INFORMATION
  Report Type: Spontaneous
  Country: JP (occurrence: None)
  Receive Date: 20210323
  Receipt Date: 20220112
  Transmission Date: 20220424
  Serious: Yes (Hospitalization)
  Sender: FDA-Public Use
  Company Number: 2021A164137

PATIENT
  Age: 23501 Day
  Sex: Female
  Weight: 44 kg

DRUGS (2)
  1. LYNPARZA [Suspect]
     Active Substance: OLAPARIB
     Indication: Ovarian cancer
     Route: 048
     Dates: start: 20210105, end: 20210302
  2. MEROPENEM [Suspect]
     Active Substance: MEROPENEM
     Route: 042
     Dates: start: 20210311, end: 20210313

REACTIONS (10)
  - Pulmonary toxicity [Recovering/Resolving]
  - Hypoxia [Recovered/Resolved]
  - Pyrexia [Recovering/Resolving]
  - SARS-CoV-2 test negative [Unknown]
  - Drug eruption [Recovering/Resolving]
  - Abdominal discomfort [Recovering/Resolving]
  - Anaemia [Not Recovered/Not Resolved]
  - Taste disorder [Not Recovered/Not Resolved]
  - Neutrophil count decreased [Recovered/Resolved]
  - Nausea [Recovering/Resolving]

NARRATIVE: CASE EVENT DATE: 20210119
